FAERS Safety Report 10019362 (Version 1)
Quarter: 2014Q1

REPORT INFORMATION
  Report Type: Spontaneous
  Country: FR (occurrence: FR)
  Receive Date: 20140318
  Receipt Date: 20140318
  Transmission Date: 20141002
  Serious: Yes (Death, Life-Threatening, Hospitalization)
  Sender: FDA-Public Use
  Company Number: FR-ELI_LILLY_AND_COMPANY-FR201403005432

PATIENT
  Age: 54 Year
  Sex: Female

DRUGS (8)
  1. GEMZAR [Suspect]
     Indication: BREAST CANCER
     Dosage: UNK
     Route: 042
     Dates: start: 201304, end: 20131202
  2. HERCEPTIN [Concomitant]
  3. CORTANCYL [Concomitant]
  4. CARDENSIEL [Concomitant]
     Dosage: 1.25 MG, UNK
  5. INEXIUM [Concomitant]
     Dosage: 20 MG, UNK
  6. NITRIDERM [Concomitant]
     Dosage: 10 MG, QD
     Route: 062
  7. PROCORALAN [Concomitant]
     Dosage: 5 MG, UNK
  8. ALPRAZOLAM [Concomitant]

REACTIONS (5)
  - Cardio-respiratory arrest [Fatal]
  - Malignant neoplasm progression [Fatal]
  - Septic shock [Fatal]
  - Renal failure acute [Unknown]
  - Glomerulonephritis [Not Recovered/Not Resolved]
